FAERS Safety Report 9306392 (Version 1)
Quarter: 2013Q2

REPORT INFORMATION
  Report Type: Spontaneous
  Country: US (occurrence: US)
  Receive Date: 20130523
  Receipt Date: 20130523
  Transmission Date: 20140414
  Serious: No
  Sender: FDA-Public Use
  Company Number: US-BAYER-2013-064182

PATIENT
  Age: 43 Year
  Sex: Male

DRUGS (2)
  1. CIPRO [Suspect]
     Indication: PROSTATE INFECTION
     Dosage: 500 MG, BID, FOR 10 OR 14 DAYS
     Dates: start: 201211
  2. CIPRO [Suspect]
     Indication: SINUSITIS
     Dosage: 750 MG, BID
     Dates: start: 20130520

REACTIONS (3)
  - Fatigue [None]
  - Diarrhoea [None]
  - Abdominal discomfort [Not Recovered/Not Resolved]
